FAERS Safety Report 4667923-X (Version None)
Quarter: 2005Q2

REPORT INFORMATION
  Report Type: 
  Country: None (occurrence: None)
  Receive Date: 20050520
  Receipt Date: 20050508
  Transmission Date: 20051028
  Serious: Yes (Death)
  Sender: FDA-Public Use
  Company Number: TW-KINGPHARMUSA00001-K200500601

PATIENT
  Age: 81 Year
  Sex: Male

DRUGS (6)
  1. EPINEPHRINE [Suspect]
     Indication: RESUSCITATION
     Dosage: 25 MG, UNK
  2. VASOPRESSIN INJECTION [Suspect]
     Indication: RESUSCITATION
     Dosage: 40 U, UNK
  3. LIDOCAINE [Concomitant]
     Indication: RESUSCITATION
     Dosage: 200 MG, UNK
  4. AMIODARONE HCL [Concomitant]
     Indication: RESUSCITATION
     Dosage: 150 MG, UNK
  5. AMIODARONE HCL [Concomitant]
     Dosage: 900 MG/24 HOURS
  6. DOPAMINE HCL [Suspect]
     Indication: THERAPEUTIC PROCEDURE
     Dosage: 15 UG/KG

REACTIONS (14)
  - ABDOMINAL DISTENSION [None]
  - AIR EMBOLISM [None]
  - ALANINE AMINOTRANSFERASE INCREASED [None]
  - AORTIC ATHEROSCLEROSIS [None]
  - ASPARTATE AMINOTRANSFERASE INCREASED [None]
  - BLOOD AMYLASE INCREASED [None]
  - BLOOD CREATININE INCREASED [None]
  - EJECTION FRACTION DECREASED [None]
  - HEPATIC ENZYME INCREASED [None]
  - INTESTINAL INFARCTION [None]
  - MULTI-ORGAN FAILURE [None]
  - NECROTISING COLITIS [None]
  - PNEUMATOSIS CYSTOIDES INTESTINALIS [None]
  - VENTRICULAR HYPOKINESIA [None]
